FAERS Safety Report 5680525-1 (Version None)
Quarter: 2008Q1

REPORT INFORMATION
  Report Type: 
  Country: None (occurrence: None)
  Receive Date: 20080326
  Receipt Date: 20080321
  Transmission Date: 20080703
  Serious: Yes (Other)
  Sender: FDA-Public Use
  Company Number: US-ASTRAZENECA-2004UW22959

PATIENT
  Age: 76 Year
  Sex: Female
  Weight: 68 kg

DRUGS (10)
  1. ARIMIDEX [Suspect]
     Indication: BREAST CANCER FEMALE
     Route: 048
     Dates: start: 20020501, end: 20041101
  2. FEMARA [Suspect]
     Dates: start: 20040101, end: 20080218
  3. ZOLOFT [Concomitant]
  4. NEXIUM [Concomitant]
     Route: 048
  5. FOSAMAX [Concomitant]
  6. CALCIUM [Concomitant]
  7. GLUCOSAMINE [Concomitant]
  8. BEXTRA [Concomitant]
  9. TYLENOL (CAPLET) [Concomitant]
  10. PRILOSEC [Concomitant]
     Route: 048

REACTIONS (5)
  - ENDOMETRIAL NEOPLASM [None]
  - HOT FLUSH [None]
  - INCONTINENCE [None]
  - UTERINE CANCER [None]
  - VAGINAL HAEMORRHAGE [None]
